FAERS Safety Report 21789999 (Version 4)
Quarter: 2023Q2

REPORT INFORMATION
  Report Type: Spontaneous
  Country: JP (occurrence: None)
  Receive Date: 20221228
  Receipt Date: 20230526
  Transmission Date: 20230721
  Serious: Yes (Hospitalization)
  Sender: FDA-Public Use
  Company Number: 2022A416969

PATIENT
  Age: 15 Year
  Sex: Female

DRUGS (8)
  1. KOSELUGO [Interacting]
     Active Substance: SELUMETINIB
     Indication: Neurofibroma
     Route: 048
     Dates: start: 20221215, end: 20221222
  2. KOSELUGO [Interacting]
     Active Substance: SELUMETINIB
     Indication: Neurofibromatosis
     Route: 048
     Dates: start: 20221215, end: 20221222
  3. KOSELUGO [Interacting]
     Active Substance: SELUMETINIB
     Indication: Neurofibroma
     Route: 048
     Dates: start: 20230106
  4. KOSELUGO [Interacting]
     Active Substance: SELUMETINIB
     Indication: Neurofibromatosis
     Route: 048
     Dates: start: 20230106
  5. KOSELUGO [Interacting]
     Active Substance: SELUMETINIB
     Indication: Neurofibroma
     Route: 048
  6. KOSELUGO [Interacting]
     Active Substance: SELUMETINIB
     Indication: Neurofibromatosis
     Route: 048
  7. LIPIDIL [Concomitant]
     Active Substance: FENOFIBRATE
     Indication: Dyslipidaemia
     Route: 048
  8. SODIUM PHOSPHATE, DIBASIC\SODIUM PHOSPHATE, MONOBASIC [Concomitant]
     Active Substance: SODIUM PHOSPHATE, DIBASIC\SODIUM PHOSPHATE, MONOBASIC
     Indication: Hypophosphataemia
     Route: 048
     Dates: start: 202207

REACTIONS (6)
  - Drug interaction [Unknown]
  - Femur fracture [Not Recovered/Not Resolved]
  - Fall [Not Recovered/Not Resolved]
  - Liver function test increased [Recovered/Resolved]
  - Eczema [Recovered/Resolved]
  - Acne [Recovered/Resolved]

NARRATIVE: CASE EVENT DATE: 20221218
